FAERS Safety Report 14126980 (Version 1)
Quarter: 2017Q4

REPORT INFORMATION
  Report Type: Report from Study
  Country: US (occurrence: US)
  Receive Date: 20171026
  Receipt Date: 20171026
  Transmission Date: 20180321
  Serious: Yes (Hospitalization, Other)
  Sender: FDA-Public Use
  Company Number: US-BRISTOL-MYERS SQUIBB COMPANY-BMS-2017-093797

PATIENT
  Age: 63 Year
  Sex: Female
  Weight: 84.3 kg

DRUGS (2)
  1. IPILIMUMAB [Suspect]
     Active Substance: IPILIMUMAB
     Indication: ADRENAL GLAND CANCER
     Dosage: 86 MG, UNK
     Route: 042
     Dates: start: 20170907, end: 20170907
  2. NIVOLUMAB [Suspect]
     Active Substance: NIVOLUMAB
     Indication: ADRENAL GLAND CANCER
     Dosage: 480 MG, UNK
     Route: 042
     Dates: start: 20170907, end: 20170921

REACTIONS (2)
  - Hyperkalaemia [Recovering/Resolving]
  - Acute kidney injury [Recovering/Resolving]

NARRATIVE: CASE EVENT DATE: 20171003
